FAERS Safety Report 13821779 (Version 1)
Quarter: 2017Q3

REPORT INFORMATION
  Report Type: Spontaneous
  Country: IN (occurrence: IN)
  Receive Date: 20170801
  Receipt Date: 20170801
  Transmission Date: 20171127
  Serious: Yes (Life-Threatening)
  Sender: FDA-Public Use
  Company Number: IN-BAUSCH-BL-2017-022677

PATIENT
  Age: 7 Month
  Sex: Male

DRUGS (4)
  1. AMLODIPINE [Suspect]
     Active Substance: AMLODIPINE BESYLATE
     Indication: MALIGNANT HYPERTENSION
     Route: 065
  2. ENALAPRIL [Suspect]
     Active Substance: ENALAPRIL
     Indication: MALIGNANT HYPERTENSION
     Route: 048
  3. CLONIDINE. [Suspect]
     Active Substance: CLONIDINE
     Indication: MALIGNANT HYPERTENSION
     Route: 065
  4. PRAZOSIN. [Suspect]
     Active Substance: PRAZOSIN
     Indication: MALIGNANT HYPERTENSION
     Route: 065

REACTIONS (1)
  - Drug ineffective [Recovering/Resolving]
